FAERS Safety Report 6580019-5 (Version None)
Quarter: 2010Q1

REPORT INFORMATION
  Report Type: 
  Country: None (occurrence: None)
  Receive Date: 20100212
  Receipt Date: 20100205
  Transmission Date: 20100710
  Serious: Yes (Life-Threatening, Hospitalization)
  Sender: FDA-Public Use
  Company Number: US-MERCK-0901USA00359

PATIENT
  Age: 69 Year
  Sex: Female
  Weight: 95 kg

DRUGS (13)
  1. JANUVIA [Suspect]
     Indication: DIABETES MELLITUS
     Route: 048
     Dates: start: 20080320, end: 20080501
  2. JANUVIA [Suspect]
     Route: 048
     Dates: start: 20080501, end: 20080604
  3. JANUVIA [Suspect]
     Route: 048
  4. LANTUS [Concomitant]
     Indication: DIABETES MELLITUS
     Route: 058
  5. BYETTA [Concomitant]
     Indication: DIABETES MELLITUS
     Route: 058
  6. INSULIN HUMAN [Concomitant]
     Indication: BLOOD GLUCOSE INCREASED
     Route: 065
  7. ALLOPURINOL [Concomitant]
     Indication: GOUT
     Route: 048
  8. CLONIDINE [Concomitant]
     Indication: HYPERTENSION
     Route: 048
  9. COZAAR [Concomitant]
     Route: 048
  10. PROTONIX [Concomitant]
     Indication: GASTROOESOPHAGEAL REFLUX DISEASE
     Route: 048
  11. ESTRADIOL [Concomitant]
     Route: 065
  12. HUMALOG [Concomitant]
     Route: 065
     Dates: start: 20090717
  13. TUMS [Suspect]
     Route: 065

REACTIONS (13)
  - BLOOD CALCIUM INCREASED [None]
  - BLOOD POTASSIUM DECREASED [None]
  - CARDIAC FAILURE CONGESTIVE [None]
  - DEHYDRATION [None]
  - DIARRHOEA [None]
  - DISORIENTATION [None]
  - DIZZINESS [None]
  - DRUG INEFFECTIVE [None]
  - HYPERSENSITIVITY [None]
  - RENAL FAILURE [None]
  - RENAL FAILURE ACUTE [None]
  - URINARY TRACT INFECTION [None]
  - WRONG TECHNIQUE IN DRUG USAGE PROCESS [None]
